FAERS Safety Report 8094118-2 (Version None)
Quarter: 2012Q1

REPORT INFORMATION
  Report Type: 
  Country: None (occurrence: None)
  Receive Date: 20120131
  Receipt Date: 20120118
  Transmission Date: 20120608
  Serious: Yes (Hospitalization, Disabling, Other)
  Sender: FDA-Public Use
  Company Number: US-CELGENEUS-163-21880-11121169

PATIENT
  Sex: Male

DRUGS (20)
  1. DARBEPOETIN ALFA IN POLYSORBAT [Concomitant]
     Dosage: .6 MILLILITER
     Route: 058
  2. DIGOXIN [Concomitant]
     Dosage: 125 MICROGRAM
     Route: 048
  3. OMEPRAZOLE [Concomitant]
     Dosage: 10 MILLIGRAM
     Route: 048
  4. ROCEPHIN [Concomitant]
     Indication: INTERVERTEBRAL DISC DISORDER
     Route: 041
     Dates: end: 20111030
  5. ARANESP [Concomitant]
     Dosage: 500 MICROGRAM
     Route: 058
  6. TRAVOPROST [Concomitant]
     Dosage: .004 PERCENT
     Route: 047
  7. FINASTERIDE [Concomitant]
     Dosage: 5 MILLIGRAM
     Route: 048
  8. LEVOTHYROXINE SODIUM [Concomitant]
     Dosage: 88 MICROGRAM
     Route: 048
  9. ACIDOPHILIS [Concomitant]
     Dosage: 1 TABLET
     Route: 065
  10. MULTI-VITAMINS [Concomitant]
     Dosage: 1 TABLET
     Route: 048
  11. PREDNISONE TAB [Concomitant]
     Indication: SCIATICA
     Dosage: 10 MILLIGRAM
     Route: 048
  12. FILGRASTIM [Concomitant]
     Dosage: 480 MCG/1.6 ML
     Route: 058
  13. PLATELETS [Concomitant]
     Route: 065
     Dates: start: 20111222, end: 20111222
  14. REVLIMID [Suspect]
     Dosage: 5 MILLIGRAM
     Route: 048
     Dates: start: 20111128, end: 20111130
  15. EZETIMIBE [Concomitant]
     Dosage: 10 MILLIGRAM
     Route: 048
  16. VANCOMYCIN HCL [Concomitant]
     Indication: INTERVERTEBRAL DISC DISORDER
     Route: 041
     Dates: end: 20111030
  17. NEUPOGEN [Concomitant]
     Indication: NEUTROPENIA
  18. ANTIBIOTICS [Concomitant]
     Indication: INTERVERTEBRAL DISC DISORDER
     Route: 065
     Dates: end: 20111030
  19. METOPROLOL SUCCINATE [Concomitant]
     Dosage: 25 MILLIGRAM
     Route: 048
  20. METOCLOPRAMIDE [Concomitant]
     Dosage: 15 MILLIGRAM
     Route: 048

REACTIONS (5)
  - FEBRILE NEUTROPENIA [None]
  - DRUG INTOLERANCE [None]
  - PERFORMANCE STATUS DECREASED [None]
  - BACK PAIN [None]
  - BONE MARROW FAILURE [None]
